FAERS Safety Report 8965716 (Version 1)
Quarter: 2012Q4

REPORT INFORMATION
  Report Type: Spontaneous
  Country: DE (occurrence: None)
  Receive Date: 20121206
  Receipt Date: 20121206
  Transmission Date: 20130627
  Serious: Yes (Other)
  Sender: FDA-Public Use
  Company Number: DE-1195525

PATIENT
  Age: 29 Year
  Sex: Female

DRUGS (4)
  1. VIGAMOX [Suspect]
     Indication: KERATITIS FUNGAL
     Dosage: 0.5 % 1x/30 minutes ophthalmic
1 week 3 days until not continuing
     Route: 047
  2. NEOMYCIN SULFATE, POLYMYXIN B SULFATE AND BACITRACIN ZINC [Suspect]
     Indication: KERATITIS FUNGAL
     Dosage: 1 DF 1x/30 minutes ophthalmic
1 week 3 days until not continuing
     Route: 047
  3. FLUCONAZOLE [Suspect]
     Indication: KERATITIS FUNGAL
     Dosage: 1 DF q1h
1 week 3 days until not continuing
  4. CYCLOPENTOLATE [Concomitant]

REACTIONS (1)
  - Keratitis fungal [None]
